FAERS Safety Report 6708552-3 (Version None)
Quarter: 2010Q2

REPORT INFORMATION
  Report Type: 
  Country: None (occurrence: None)
  Receive Date: 20100503
  Receipt Date: 20100423
  Transmission Date: 20101027
  Serious: Yes (Other)
  Sender: FDA-Public Use
  Company Number: US-PFIZER INC-2010052650

PATIENT
  Sex: Female
  Weight: 80.726 kg

DRUGS (6)
  1. LIPITOR [Suspect]
     Indication: BLOOD CHOLESTEROL INCREASED
     Dosage: UNK
     Dates: start: 20070101, end: 20070101
  2. CRESTOR [Suspect]
     Indication: BLOOD CHOLESTEROL INCREASED
     Dosage: UNK
     Dates: start: 20070101, end: 20070101
  3. NEXIUM [Suspect]
     Dosage: UNK
     Dates: start: 20070101, end: 20070101
  4. SYNTHROID [Concomitant]
     Indication: HYPOTHYROIDISM
     Dosage: 75 UG, 1X/DAY
     Route: 048
  5. ZANTAC [Concomitant]
     Indication: REFLUX GASTRITIS
     Dosage: 150 MG, 1X/DAY
     Route: 048
  6. LYRICA [Concomitant]
     Indication: FIBROMYALGIA
     Dosage: 100 MG, 1X/DAY
     Route: 048

REACTIONS (8)
  - BLOOD CHOLESTEROL INCREASED [None]
  - BODY TEMPERATURE INCREASED [None]
  - FATIGUE [None]
  - HEPATIC PAIN [None]
  - INFLUENZA LIKE ILLNESS [None]
  - LIVER FUNCTION TEST ABNORMAL [None]
  - MYALGIA [None]
  - PAIN IN EXTREMITY [None]
